FAERS Safety Report 17314580 (Version 1)
Quarter: 2020Q1

REPORT INFORMATION
  Report Type: Spontaneous
  Country: GB (occurrence: GB)
  Receive Date: 20200124
  Receipt Date: 20200124
  Transmission Date: 20200409
  Serious: Yes (Other)
  Sender: FDA-Public Use
  Company Number: GB-TEVA-2020-GB-1171844

PATIENT
  Age: 82 Year
  Sex: Female
  Weight: 97 kg

DRUGS (14)
  1. TRAMADOL. [Concomitant]
     Active Substance: TRAMADOL
     Dosage: TAKE ONE OR TWO AS DIRECTED
     Dates: start: 20190513
  2. FUROSEMIDE. [Concomitant]
     Active Substance: FUROSEMIDE
     Indication: SWELLING
     Dosage: 1 DOSAGE FORM, MORNING
     Dates: start: 20171214
  3. LEVOTHYROXINE. [Concomitant]
     Active Substance: LEVOTHYROXINE
     Dosage: 1 DOSAGE FORM, EACH MORNING
     Dates: start: 20181116
  4. ACIDEX ADVANCE HEARTBURN AND INDIGESTION RELIEF [Concomitant]
     Dosage: TAKE ONE OR TWO 5ML SPOONFULS FOUR TIMES A DAY
     Route: 048
     Dates: start: 20191227
  5. VENTOLIN [Concomitant]
     Active Substance: ALBUTEROL SULFATE
     Dosage: 2 DOSAGE FORMS
     Route: 055
     Dates: start: 20190717
  6. HYDROXOCOBALAMIN [Concomitant]
     Active Substance: HYDROXOCOBALAMIN
     Dosage: 1 DOSAGE FORM
     Route: 030
     Dates: start: 20191014
  7. SIMVASTATIN. [Concomitant]
     Active Substance: SIMVASTATIN
     Dosage: 1 DOSAGE FORM, AT NIGHT
     Dates: start: 20181017
  8. RANITIDINE. [Concomitant]
     Active Substance: RANITIDINE
     Dosage: 1 DOSAGE FORM, AT NIGHT
     Dates: start: 20190612, end: 20191031
  9. OMEPRAZOLE. [Concomitant]
     Active Substance: OMEPRAZOLE
     Dosage: 1 DOSAGE FORM
     Dates: start: 20191031, end: 20191114
  10. LANSOPRAZOLE. [Suspect]
     Active Substance: LANSOPRAZOLE
     Dosage: 15 MG
     Route: 048
     Dates: start: 20191114, end: 20191227
  11. ALGESAL [Concomitant]
     Active Substance: DIETHYLAMINE SALICYLATE
     Dosage: USE AS DIRECTED
     Dates: start: 20190717
  12. CLOPIDOGREL [Concomitant]
     Active Substance: CLOPIDOGREL BISULFATE
     Dosage: 1 DOSAGE FORM
     Dates: start: 20181116
  13. NITROFURANTOIN. [Concomitant]
     Active Substance: NITROFURANTOIN
     Dosage: 2 DOSAGE FORM
     Dates: start: 20191112, end: 20191119
  14. FOSTAIR [Concomitant]
     Active Substance: BECLOMETHASONE\FORMOTEROL
     Dosage: 4 DOSAGE FORMS, PUFFS BUT WITH EXTRA SYMPTOMS
     Dates: start: 20190717

REACTIONS (1)
  - Colitis microscopic [Recovered/Resolved]

NARRATIVE: CASE EVENT DATE: 20191206
